FAERS Safety Report 20368341 (Version 4)
Quarter: 2022Q2

REPORT INFORMATION
  Report Type: Spontaneous
  Country: DE (occurrence: DE)
  Receive Date: 20220124
  Receipt Date: 20220509
  Transmission Date: 20220720
  Serious: Yes (Death, Other)
  Sender: FDA-Public Use
  Company Number: DE-BoehringerIngelheim-2022-BI-108041

PATIENT
  Age: 77 Year
  Sex: Female
  Weight: 48 kg

DRUGS (5)
  1. PRADAXA [Suspect]
     Active Substance: DABIGATRAN ETEXILATE MESYLATE
     Indication: Thrombosis prophylaxis
     Dosage: 1X75MG, THAN 2X75MG?(IN THE EVENING 75 MG PRADAXA ON DAY OF SURGERY / 150 MG PRADAXA ON FIRST AND SE
     Route: 048
     Dates: start: 20220110, end: 20220112
  2. IBUPROFEN [Concomitant]
     Active Substance: IBUPROFEN
     Indication: Product used for unknown indication
  3. ETORICOXIB [Concomitant]
     Active Substance: ETORICOXIB
     Indication: Product used for unknown indication
     Dosage: INREGULAR INTAKE AS NECESSARY (LONGER AGO)
  4. PANTOZOL [Concomitant]
     Active Substance: PANTOPRAZOLE SODIUM
     Indication: Product used for unknown indication
  5. Biphosphonate [Concomitant]
     Indication: Product used for unknown indication
     Dosage: LONGER AGO

REACTIONS (9)
  - Death [Fatal]
  - Sepsis [Unknown]
  - Haematemesis [Unknown]
  - Gastrointestinal haemorrhage [Unknown]
  - Subarachnoid haemorrhage [Unknown]
  - Haemorrhage intracranial [Unknown]
  - Coagulation test abnormal [Unknown]
  - Haemorrhage [Recovered/Resolved]
  - Ischaemia [Unknown]

NARRATIVE: CASE EVENT DATE: 20220113
